FAERS Safety Report 9870501 (Version 2)
Quarter: 2014Q2

REPORT INFORMATION
  Report Type: Spontaneous
  Country: US (occurrence: US)
  Receive Date: 20140205
  Receipt Date: 20140401
  Transmission Date: 20141212
  Serious: Yes (Congenital Anomaly, Other)
  Sender: FDA-Public Use
  Company Number: US-PFIZER INC-2014032148

PATIENT
  Sex: Male

DRUGS (17)
  1. ZOLOFT [Suspect]
     Dosage: UNK
     Route: 064
     Dates: start: 1995
  2. SERTRALINE HCL [Suspect]
     Dosage: UNK
     Route: 064
     Dates: start: 1995
  3. SYNTHROID [Concomitant]
     Dosage: UNK
     Route: 064
  4. CLARITIN [Concomitant]
     Dosage: UNK
     Route: 064
  5. NASONEX [Concomitant]
     Dosage: UNK
     Route: 064
  6. ALBUTEROL [Concomitant]
     Dosage: UNK, INHALER
     Route: 064
  7. ZYRTEC [Concomitant]
     Dosage: UNK
     Route: 064
  8. PREDNISONE [Concomitant]
     Dosage: UNK
     Route: 064
  9. GUIATUSS A.C. [Concomitant]
     Dosage: UNK
     Route: 064
  10. ZOVIRAX [Concomitant]
     Dosage: UNK, 5%
     Route: 064
  11. ALLEGRA [Concomitant]
     Dosage: UNK
     Route: 064
  12. AEROBID-M [Concomitant]
     Dosage: UNK, INHALER
     Route: 064
  13. HYDROCODONE [Concomitant]
     Dosage: UNK
     Route: 064
  14. PRENATAL PLUS [Concomitant]
     Dosage: UNK
     Route: 064
  15. ZITHROMAX [Concomitant]
     Dosage: UNK
     Route: 064
  16. CARISOPRODOL [Concomitant]
     Dosage: UNK
     Route: 064
  17. PENICILLIN VK [Concomitant]
     Dosage: UNK
     Route: 064

REACTIONS (5)
  - Maternal exposure during pregnancy [Unknown]
  - Ventricular septal defect [Unknown]
  - Right ventricle outflow tract obstruction [Unknown]
  - Atrial septal defect [Unknown]
  - Atrial septal defect [Unknown]
